FAERS Safety Report 19015018 (Version 2)
Quarter: 2021Q1

REPORT INFORMATION
  Report Type: Spontaneous
  Country: US (occurrence: US)
  Receive Date: 20210317
  Receipt Date: 20210330
  Transmission Date: 20210420
  Serious: Yes (Death)
  Sender: FDA-Public Use
  Company Number: US-FARMAPROD-202103-0322

PATIENT
  Sex: Female

DRUGS (13)
  1. PANTOPRAZOLE SODIUM. [Concomitant]
     Active Substance: PANTOPRAZOLE SODIUM
     Dosage: DELAYED RELEASE TABLET
  2. XANAX [Concomitant]
     Active Substance: ALPRAZOLAM
  3. RESTASIS [Concomitant]
     Active Substance: CYCLOSPORINE
     Dosage: DROPERETTE
  4. XARELTO [Concomitant]
     Active Substance: RIVAROXABAN
  5. OXERVATE [Suspect]
     Active Substance: CENEGERMIN-BKBJ
     Indication: NEUROTROPHIC KERATOPATHY
     Route: 047
     Dates: start: 20210114
  6. DEXAMETHASONE. [Concomitant]
     Active Substance: DEXAMETHASONE
  7. HYDROXYCHLOROQUINE SULFATE. [Concomitant]
     Active Substance: HYDROXYCHLOROQUINE SULFATE
  8. ERDAFITINIB. [Concomitant]
     Active Substance: ERDAFITINIB
     Indication: LUNG SQUAMOUS CELL CARCINOMA METASTATIC
     Route: 048
     Dates: start: 20200415
  9. HYDROCODONE/ACETAMINOPHEN [Concomitant]
     Active Substance: ACETAMINOPHEN\HYDROCODONE
     Indication: PALLIATIVE CARE
  10. XTAMPZA [Concomitant]
     Active Substance: OXYCODONE
     Dosage: EXTENDED RELEASE CAPSULE
  11. REFRESH CLASSIC [Concomitant]
     Active Substance: POLYVINYL ALCOHOL\POVIDONE
  12. LEVOTHYROXINE. [Concomitant]
     Active Substance: LEVOTHYROXINE
  13. SEVELAMER CARBONATE. [Concomitant]
     Active Substance: SEVELAMER CARBONATE

REACTIONS (2)
  - Lung squamous cell carcinoma metastatic [Fatal]
  - Pericardial effusion [Fatal]
